FAERS Safety Report 8647681 (Version 8)
Quarter: 2013Q4

REPORT INFORMATION
  Report Type: Spontaneous
  Country: US (occurrence: US)
  Receive Date: 20120703
  Receipt Date: 20131112
  Transmission Date: 20140711
  Serious: Yes (Life-Threatening, Hospitalization, Disabling, Other)
  Sender: FDA-Public Use
  Company Number: US-JNJFOC-20120612662

PATIENT
  Age: 40 Year
  Sex: Male

DRUGS (2)
  1. STELARA [Suspect]
     Indication: PSORIATIC ARTHROPATHY
     Route: 058
     Dates: start: 2006, end: 200710
  2. STELARA [Suspect]
     Indication: PSORIASIS
     Route: 058
     Dates: start: 2006, end: 200710

REACTIONS (23)
  - Suicidal ideation [Unknown]
  - Deformity [Unknown]
  - Haemorrhage [Unknown]
  - Cardiac disorder [Not Recovered/Not Resolved]
  - Pulmonary mass [Not Recovered/Not Resolved]
  - Immune system disorder [Not Recovered/Not Resolved]
  - Erythrodermic psoriasis [Not Recovered/Not Resolved]
  - Pustular psoriasis [Not Recovered/Not Resolved]
  - Psoriasis [Not Recovered/Not Resolved]
  - Guttate psoriasis [Not Recovered/Not Resolved]
  - Renal failure [Unknown]
  - Infection [Unknown]
  - Dehydration [Unknown]
  - Psoriatic arthropathy [Not Recovered/Not Resolved]
  - Psoriasis [Not Recovered/Not Resolved]
  - Fungal infection [Unknown]
  - Abasia [Not Recovered/Not Resolved]
  - Weight increased [Not Recovered/Not Resolved]
  - Nerve injury [Unknown]
  - Pain [Unknown]
  - Tooth loss [Unknown]
  - Asthenia [Unknown]
  - Lower extremity mass [Unknown]
